FAERS Safety Report 6232225-7 (Version None)
Quarter: 2009Q2

REPORT INFORMATION
  Report Type: 
  Country: None (occurrence: None)
  Receive Date: 20090615
  Receipt Date: 20090615
  Transmission Date: 20091009
  Serious: Yes (Other)
  Sender: FDA-Public Use
  Company Number: None

PATIENT
  Age: 17 Year
  Sex: Female
  Weight: 77.5651 kg

DRUGS (4)
  1. ISOTRETINOIN [Suspect]
     Indication: ACNE
     Dosage: 20 OR 40MG/D
     Dates: start: 20090213, end: 20090309
  2. ISOTRETINOIN [Suspect]
     Indication: ACNE
     Dosage: 20 OR 40MG/D
     Dates: start: 20090430, end: 20090527
  3. MUCINEX [Concomitant]
  4. ZYRTEC [Concomitant]

REACTIONS (3)
  - DIZZINESS [None]
  - POLYP [None]
  - RECTAL HAEMORRHAGE [None]
